FAERS Safety Report 23964781 (Version 1)
Quarter: 2024Q2

REPORT INFORMATION
  Report Type: Other
  Country: CN (occurrence: None)
  Receive Date: 20240612
  Receipt Date: 20240612
  Transmission Date: 20240716
  Serious: Yes (Death)
  Sender: FDA-Public Use
  Company Number: CN-ROCHE-3580038

PATIENT

DRUGS (7)
  1. MYCOPHENOLATE MOFETIL [Suspect]
     Active Substance: MYCOPHENOLATE MOFETIL
     Indication: Prophylaxis against graft versus host disease
     Dosage: 2 DIVIDED DOSES PER DAY STARTING 1 DAY PRIOR TO TRANSPLANT
     Route: 048
  2. BUSULFAN [Suspect]
     Active Substance: BUSULFAN
     Indication: Prophylaxis against graft versus host disease
     Dosage: FROM DAY 9 TO DAY 6 BEFORE TRANSPLANT
     Route: 042
  3. CYCLOPHOSPHAMIDE [Suspect]
     Active Substance: CYCLOPHOSPHAMIDE
     Indication: Prophylaxis against graft versus host disease
     Dosage: FROM DAY 5 TO DAY 3 BEFORE TRANSPLANT
     Route: 041
  4. CYCLOPHOSPHAMIDE [Suspect]
     Active Substance: CYCLOPHOSPHAMIDE
     Dosage: 3 DAYS TO 4 DAYS AFTER STEM CELL INFUSION
     Route: 041
  5. FLUDARABINE [Suspect]
     Active Substance: FLUDARABINE PHOSPHATE
     Indication: Prophylaxis against graft versus host disease
     Dosage: FROM DAY 9 TO DAY 7 BEFORE TRANSPLANT
     Route: 041
  6. THYMOCYTE IMMUNE GLOBULIN NOS [Suspect]
     Active Substance: THYMOCYTE IMMUNE GLOBULIN NOS
     Indication: Prophylaxis against graft versus host disease
     Dosage: FROM DAY 4 TO DAY 2 BEFORE TRANSPLANT
     Route: 042
  7. CYCLOSPORINE [Suspect]
     Active Substance: CYCLOSPORINE
     Indication: Prophylaxis against graft versus host disease
     Dosage: FOR 24 HOURS OR ORALLY IN 2 DIVIDED DOSES 1 DAY BEFORE TRANSPLANTATION
     Route: 041

REACTIONS (10)
  - Cytomegalovirus infection [Fatal]
  - Respiratory distress [Fatal]
  - Pneumonia [Fatal]
  - Off label use [Fatal]
  - Epstein-Barr virus infection [Unknown]
  - Aspergillus infection [Unknown]
  - Candida infection [Unknown]
  - Pneumocystis jirovecii infection [Unknown]
  - Legionella infection [Unknown]
  - Adenovirus infection [Unknown]
